FAERS Safety Report 17404824 (Version 1)
Quarter: 2020Q1

REPORT INFORMATION
  Report Type: Report from Study
  Country: None (occurrence: US)
  Receive Date: 20200211
  Receipt Date: 20200211
  Transmission Date: 20200409
  Serious: Yes (Hospitalization, Other)
  Sender: FDA-Public Use
  Company Number: US-ABBVIE-20K-163-3247727-00

PATIENT
  Age: 50 Year
  Sex: Male
  Weight: 85.35 kg

DRUGS (1)
  1. SKYRIZI [Suspect]
     Active Substance: RISANKIZUMAB-RZAA
     Indication: PSORIASIS
     Route: 058
     Dates: start: 201911

REACTIONS (31)
  - Psoriasis [Not Recovered/Not Resolved]
  - Anger [Not Recovered/Not Resolved]
  - Skin exfoliation [Unknown]
  - Cerebrovascular accident [Recovered/Resolved]
  - Mood altered [Recovered/Resolved]
  - Moaning [Recovered/Resolved]
  - Hypertension [Not Recovered/Not Resolved]
  - Weight decreased [Not Recovered/Not Resolved]
  - Brain operation [Recovered/Resolved]
  - Confusional state [Not Recovered/Not Resolved]
  - Myocardial infarction [Recovered/Resolved]
  - Loss of consciousness [Recovered/Resolved]
  - Thrombosis [Recovered/Resolved]
  - Mental status changes [Not Recovered/Not Resolved]
  - Anger [Recovered/Resolved]
  - Memory impairment [Not Recovered/Not Resolved]
  - Vomiting [Not Recovered/Not Resolved]
  - Drug ineffective [Not Recovered/Not Resolved]
  - Intracranial aneurysm [Recovered/Resolved]
  - Stent placement [Recovered/Resolved]
  - Swollen tongue [Recovered/Resolved]
  - Hypophagia [Not Recovered/Not Resolved]
  - Body height decreased [Not Recovered/Not Resolved]
  - Sensory loss [Recovered/Resolved]
  - Hospitalisation [Unknown]
  - Abnormal behaviour [Recovered/Resolved]
  - Headache [Recovered/Resolved]
  - Malaise [Recovered/Resolved]
  - Stent placement [Recovered/Resolved]
  - Nausea [Not Recovered/Not Resolved]
  - Psoriatic arthropathy [Not Recovered/Not Resolved]

NARRATIVE: CASE EVENT DATE: 2019
